FAERS Safety Report 5759197-3 (Version None)
Quarter: 2008Q2

REPORT INFORMATION
  Report Type: 
  Country: None (occurrence: None)
  Receive Date: 20080604
  Receipt Date: 20080526
  Transmission Date: 20081010
  Serious: Yes (Death)
  Sender: FDA-Public Use
  Company Number: JP-PFIZER INC-2008042039

PATIENT
  Age: 86 Year
  Sex: Male

DRUGS (2)
  1. CELECOX [Suspect]
     Indication: RHEUMATOID ARTHRITIS
     Route: 048
     Dates: start: 20071130, end: 20080223
  2. SULFASALAZINE [Suspect]
     Route: 048

REACTIONS (1)
  - PNEUMONIA [None]
